FAERS Safety Report 23742667 (Version 1)
Quarter: 2024Q2

REPORT INFORMATION
  Report Type: Spontaneous
  Country: CA (occurrence: CA)
  Receive Date: 20240415
  Receipt Date: 20240415
  Transmission Date: 20240715
  Serious: Yes (Other)
  Sender: FDA-Public Use
  Company Number: CA-PFIZER INC-202400084451

PATIENT
  Age: 22 Year
  Sex: Male

DRUGS (4)
  1. ABRILADA [Suspect]
     Active Substance: ADALIMUMAB-AFZB
     Indication: Colitis ulcerative
     Dosage: 160 MG AT WEEK 0, 80 MG AT WEEK 2 AND 40MG EVERY OTHER WEEK BEGINNING AT WEEK 4
     Route: 058
     Dates: start: 20240326
  2. ABRILADA [Suspect]
     Active Substance: ADALIMUMAB-AFZB
     Dosage: 160 MG AT WEEK 0, 80 MG AT WEEK 2 AND 40MG EVERY OTHER WEEK BEGINNING AT WEEK 4
     Route: 058
     Dates: start: 20240326
  3. ABRILADA [Suspect]
     Active Substance: ADALIMUMAB-AFZB
     Dosage: 80 MG, 2 WEEK
     Dates: start: 20240409
  4. MESALAMINE [Concomitant]
     Active Substance: MESALAMINE
     Dosage: UNK

REACTIONS (2)
  - Fatigue [Unknown]
  - Asthenia [Unknown]

NARRATIVE: CASE EVENT DATE: 20240101
